FAERS Safety Report 5447973-6 (Version None)
Quarter: 2007Q3

REPORT INFORMATION
  Report Type: 
  Country: None (occurrence: None)
  Receive Date: 20070910
  Receipt Date: 20070830
  Transmission Date: 20080115
  Serious: No
  Sender: FDA-Public Use
  Company Number: US-BOEHRINGER INGELHEIM PHARMACEUTICALS, INC.-2007-BP-20519BP

PATIENT
  Sex: Male

DRUGS (15)
  1. MIRAPEX [Suspect]
     Indication: RESTLESS LEGS SYNDROME
     Route: 048
  2. CALCIUM QUININE [Concomitant]
  3. QUININE SULFATE [Concomitant]
  4. NEURONTIN [Concomitant]
  5. NEURONTIN [Concomitant]
  6. CHLORAZEPAM [Concomitant]
  7. FLEXERIL [Concomitant]
  8. SINEMET [Concomitant]
  9. CARBIDOPA AND LEVODOPA [Concomitant]
  10. REQUIP [Concomitant]
  11. TRILEPTAL [Concomitant]
  12. COMTAN [Concomitant]
  13. CYMBALTA [Concomitant]
  14. MAGNESIUM SULFATE [Concomitant]
  15. CALZINC [Concomitant]

REACTIONS (5)
  - AFFECT LABILITY [None]
  - HYPERKINESIA [None]
  - LIMB DISCOMFORT [None]
  - SLEEP DISORDER [None]
  - SOMNOLENCE [None]
